FAERS Safety Report 4605027-2 (Version None)
Quarter: 2005Q1

REPORT INFORMATION
  Report Type: 
  Country: None (occurrence: None)
  Receive Date: 20050311
  Receipt Date: 20050211
  Transmission Date: 20050727
  Serious: Yes (Other)
  Sender: FDA-Public Use
  Company Number: 200511093US

PATIENT
  Age: 39 Year
  Sex: Male

DRUGS (2)
  1. KETEK [Suspect]
     Indication: SINUSITIS
     Route: 048
     Dates: start: 20050123, end: 20050129
  2. LEVAQUIN [Concomitant]
     Indication: SINUSITIS
     Dosage: DOSE: NOT PROVIDED
     Dates: start: 20050101, end: 20050101

REACTIONS (7)
  - ABDOMINAL PAIN UPPER [None]
  - ALANINE AMINOTRANSFERASE INCREASED [None]
  - ASPARTATE AMINOTRANSFERASE INCREASED [None]
  - BLOOD ALKALINE PHOSPHATASE INCREASED [None]
  - CYTOMEGALOVIRUS HEPATITIS [None]
  - FATIGUE [None]
  - NAUSEA [None]
